FAERS Safety Report 17193974 (Version 3)
Quarter: 2020Q1

REPORT INFORMATION
  Report Type: Spontaneous
  Country: AU (occurrence: AU)
  Receive Date: 20191223
  Receipt Date: 20200128
  Transmission Date: 20200409
  Serious: No
  Sender: FDA-Public Use
  Company Number: AU-ABBVIE-19K-008-2968847-00

PATIENT
  Age: 72 Year
  Sex: Male

DRUGS (1)
  1. TESTOGEL [Suspect]
     Active Substance: TESTOSTERONE
     Indication: HYPOGONADISM
     Dosage: 1-2 PUMPS DAILY
     Route: 062

REACTIONS (6)
  - Constipation [Recovered/Resolved]
  - Diarrhoea [Recovered/Resolved]
  - Cholelithiasis [Recovered/Resolved]
  - Prostatic disorder [Unknown]
  - Diverticulitis [Unknown]
  - Bladder disorder [Unknown]

NARRATIVE: CASE EVENT DATE: 201909
